FAERS Safety Report 4310556-5 (Version None)
Quarter: 2004Q1

REPORT INFORMATION
  Report Type: 
  Country: None (occurrence: None)
  Receive Date: 20040303
  Receipt Date: 20040219
  Transmission Date: 20041129
  Serious: Yes (Other)
  Sender: FDA-Public Use
  Company Number: GB-GLAXOSMITHKLINE-B0323945A

PATIENT
  Sex: Male

DRUGS (1)
  1. LAMICTAL [Suspect]

REACTIONS (1)
  - INFERTILITY [None]
